FAERS Safety Report 4472099-8 (Version None)
Quarter: 2004Q4

REPORT INFORMATION
  Report Type: 
  Country: None (occurrence: None)
  Receive Date: 20041012
  Receipt Date: 20041001
  Transmission Date: 20050328
  Serious: Yes (Hospitalization)
  Sender: FDA-Public Use
  Company Number: NL-MERCK-0410NLD00004M

PATIENT
  Age: 33 Year
  Sex: Female

DRUGS (6)
  1. DECADRON [Suspect]
     Indication: PROPHYLAXIS
     Route: 065
  2. DECADRON [Suspect]
     Route: 065
  3. DECADRON [Suspect]
     Route: 065
  4. DECADRON [Suspect]
     Route: 065
  5. DECADRON [Suspect]
     Route: 065
  6. DECADRON [Suspect]
     Route: 065

REACTIONS (3)
  - CAESAREAN SECTION [None]
  - DRUG EXPOSURE DURING PREGNANCY [None]
  - OLIGOHYDRAMNIOS [None]
